FAERS Safety Report 23983802 (Version 1)
Quarter: 2024Q2

REPORT INFORMATION
  Report Type: Spontaneous
  Country: GB (occurrence: GB)
  Receive Date: 20240618
  Receipt Date: 20240618
  Transmission Date: 20240716
  Serious: Yes (Other)
  Sender: FDA-Public Use
  Company Number: None

PATIENT

DRUGS (1)
  1. RYBELSUS [Suspect]
     Active Substance: SEMAGLUTIDE
     Indication: Product used for unknown indication
     Dosage: UNK

REACTIONS (6)
  - Blood cholesterol increased [Not Recovered/Not Resolved]
  - Blood bicarbonate decreased [Not Recovered/Not Resolved]
  - Dizziness postural [Not Recovered/Not Resolved]
  - Immunosuppressant drug level increased [Recovering/Resolving]
  - Weight decreased [Not Recovered/Not Resolved]
  - Flatulence [Not Recovered/Not Resolved]
